FAERS Safety Report 5041680-X (Version None)
Quarter: 2006Q3

REPORT INFORMATION
  Report Type: 
  Country: None (occurrence: None)
  Receive Date: 20060704
  Receipt Date: 20060630
  Transmission Date: 20061208
  Serious: Yes (Hospitalization)
  Sender: FDA-Public Use
  Company Number: FR-RB-3517-2006

PATIENT
  Age: 33 Year
  Sex: Female

DRUGS (2)
  1. BUPRENORPHINE HCL [Suspect]
     Indication: DRUG DEPENDENCE
     Dosage: 6 - 8 MG QD
     Route: 048
  2. BUPRENORPHINE HCL [Suspect]
     Dosage: 2 - 3 INJECTIONS  QD
     Route: 042

REACTIONS (5)
  - DRUG EXPOSURE DURING PREGNANCY [None]
  - OEDEMA PERIPHERAL [None]
  - PREGNANCY [None]
  - UNEVALUABLE EVENT [None]
  - UNWANTED PREGNANCY [None]
